FAERS Safety Report 5605935-X (Version None)
Quarter: 2008Q1

REPORT INFORMATION
  Report Type: 
  Country: None (occurrence: None)
  Receive Date: 20080123
  Receipt Date: 20080123
  Transmission Date: 20080703
  Serious: Yes (Life-Threatening)
  Sender: FDA-Public Use
  Company Number: None

PATIENT
  Age: 50 Year
  Sex: Male
  Weight: 74.8435 kg

DRUGS (2)
  1. CHANTIX [Suspect]
     Indication: SMOKING CESSATION THERAPY
     Dosage: 1/2 PILL 3 DAYS PO 1/2 4DAYS THAN 1 PILL 2X A DAY AS LISTED PRIOR PO
     Route: 048
     Dates: start: 20071220, end: 20080110
  2. CHANTIX [Suspect]
     Indication: SMOKING CESSATION THERAPY
     Dosage: 1/2 PILL 3 DAYS PO 1/2 4DAYS THAN 1 PILL 2X A DAY AS LISTED PRIOR PO
     Route: 048
     Dates: start: 20071227, end: 20080110

REACTIONS (5)
  - AGGRESSION [None]
  - ALCOHOL USE [None]
  - ANGER [None]
  - DEPRESSION [None]
  - SUICIDAL IDEATION [None]
